FAERS Safety Report 5068222-7 (Version None)
Quarter: 2006Q3

REPORT INFORMATION
  Report Type: 
  Country: None (occurrence: None)
  Receive Date: 20060802
  Receipt Date: 20050608
  Transmission Date: 20061208
  Serious: No
  Sender: FDA-Public Use
  Company Number: US-BRISTOL-MYERS SQUIBB COMPANY-12997607

PATIENT
  Age: 65 Year
  Sex: Female
  Weight: 112 kg

DRUGS (11)
  1. WARFARIN SODIUM [Suspect]
  2. METOPROLOL [Concomitant]
  3. DIOVAN [Concomitant]
  4. CARTIA XT [Concomitant]
  5. FAMOTIDINE [Concomitant]
  6. PREVACID [Concomitant]
  7. TRICOR [Concomitant]
  8. LESCOL [Concomitant]
  9. COLACE [Concomitant]
  10. FUROSEMIDE [Concomitant]
  11. PLAVIX [Concomitant]
     Dates: start: 20040301

REACTIONS (3)
  - BLOOD DISORDER [None]
  - HYPERHIDROSIS [None]
  - RASH PRURITIC [None]
